FAERS Safety Report 4971629-7 (Version None)
Quarter: 2006Q2

REPORT INFORMATION
  Report Type: 
  Country: None (occurrence: None)
  Receive Date: 20060413
  Receipt Date: 20060404
  Transmission Date: 20061013
  Serious: Yes (Life-Threatening, Other)
  Sender: FDA-Public Use
  Company Number: GB-JNJFOC-20060401551

PATIENT
  Age: 10 Year
  Sex: Male

DRUGS (3)
  1. OXYBUTYNIN [Suspect]
     Indication: ENURESIS
     Route: 048
  2. DESMOPRESSIN [Suspect]
     Indication: ENURESIS
     Route: 048
     Dates: start: 20060324
  3. INSULIN [Concomitant]
     Route: 065

REACTIONS (1)
  - HYPOGLYCAEMIA [None]
